FAERS Safety Report 7322039-9 (Version None)
Quarter: 2011Q1

REPORT INFORMATION
  Report Type: 
  Country: None (occurrence: None)
  Receive Date: 20110228
  Receipt Date: 20110214
  Transmission Date: 20110831
  Serious: Yes (Other)
  Sender: FDA-Public Use
  Company Number: US-BAYER-2011-015087

PATIENT
  Sex: Male

DRUGS (1)
  1. LEVITRA [Suspect]

REACTIONS (14)
  - SWOLLEN TONGUE [None]
  - FATIGUE [None]
  - PHOTOPHOBIA [None]
  - STRABISMUS CORRECTION [None]
  - GAIT DISTURBANCE [None]
  - DYSPNOEA [None]
  - CYANOPSIA [None]
  - HEARING IMPAIRED [None]
  - FEELING ABNORMAL [None]
  - DIARRHOEA [None]
  - GINGIVAL SWELLING [None]
  - JOINT STIFFNESS [None]
  - ABDOMINAL DISCOMFORT [None]
  - NECK PAIN [None]
